FAERS Safety Report 7136022-X (Version None)
Quarter: 2010Q4

REPORT INFORMATION
  Report Type: 
  Country: None (occurrence: None)
  Receive Date: 20101204
  Receipt Date: 20101013
  Transmission Date: 20110411
  Serious: No
  Sender: FDA-Public Use
  Company Number: US-BAYER-201022689BCC

PATIENT
  Age: 3 Year
  Sex: Female

DRUGS (1)
  1. ASPIRIN [Suspect]
     Dosage: 2 DF, ONCE
     Route: 048
     Dates: start: 20101013

REACTIONS (1)
  - NO ADVERSE EVENT [None]
